FAERS Safety Report 5841242-8 (Version None)
Quarter: 2008Q3

REPORT INFORMATION
  Report Type: 
  Country: None (occurrence: None)
  Receive Date: 20080731
  Receipt Date: 20080614
  Transmission Date: 20090109
  Serious: No
  Sender: FDA-Public Use
  Company Number: US200806003523

PATIENT
  Age: 60 Year
  Sex: Male

DRUGS (3)
  1. BYETTA [Suspect]
     Indication: TYPE 2 DIABETES MELLITUS
     Dosage: 5 UG, 2/D, SUBCUTANEOUS
     Route: 058
     Dates: start: 20080613
  2. HUMULIN MIX 30/70 (INSULIN HUMAN, INSULIN HUMAN INJECTION, ISOPHANE) [Concomitant]
  3. INSULIN (INSULIN) [Concomitant]

REACTIONS (1)
  - BLOOD GLUCOSE DECREASED [None]
